FAERS Safety Report 5909474-8 (Version None)
Quarter: 2008Q4

REPORT INFORMATION
  Report Type: 
  Country: None (occurrence: None)
  Receive Date: 20081006
  Receipt Date: 20080924
  Transmission Date: 20090506
  Serious: Yes (Other)
  Sender: FDA-Public Use
  Company Number: US-PFIZER INC-2008082702

PATIENT
  Sex: Female
  Weight: 58.636 kg

DRUGS (2)
  1. CHANTIX [Suspect]
     Indication: SMOKING CESSATION THERAPY
     Route: 048
     Dates: start: 20080717, end: 20080731
  2. ADVAIR DISKUS 100/50 [Concomitant]

REACTIONS (2)
  - DYSPNOEA [None]
  - THROAT TIGHTNESS [None]
